FAERS Safety Report 11465227 (Version 2)
Quarter: 2015Q4

REPORT INFORMATION
  Report Type: Spontaneous
  Country: FI (occurrence: FI)
  Receive Date: 20150907
  Receipt Date: 20151002
  Transmission Date: 20160304
  Serious: Yes (Hospitalization)
  Sender: FDA-Public Use
  Company Number: FI-ROCHE-1630581

PATIENT
  Age: 61 Year
  Sex: Female
  Weight: 91 kg

DRUGS (13)
  1. CALCICHEW D3 FORTE [Concomitant]
     Active Substance: CALCIUM\CHOLECALCIFEROL
     Route: 065
     Dates: start: 20140909
  2. FURESIS [Concomitant]
     Active Substance: FUROSEMIDE
     Route: 065
     Dates: start: 20140114
  3. GRANISETRON [Concomitant]
     Active Substance: GRANISETRON
     Dosage: WHEN NEEDED
     Route: 065
     Dates: start: 20130516
  4. DEXAMETHASON [Concomitant]
     Active Substance: DEXAMETHASONE
     Dosage: ACCORDING TO SEPARATE INSTRUCTIONS
     Route: 065
     Dates: start: 20130527
  5. BURANA [Concomitant]
     Active Substance: IBUPROFEN
     Dosage: WHEN NEEDED
     Route: 065
     Dates: start: 20150710
  6. BONDRONAT [Suspect]
     Active Substance: IBANDRONIC ACID
     Indication: NEOPLASM MALIGNANT
     Route: 048
     Dates: start: 20130516, end: 20150618
  7. NAVELBINE [Concomitant]
     Active Substance: VINORELBINE TARTRATE
     Dosage: ACCORDING TO SEPARATE INSTRUCTIONS
     Route: 065
     Dates: start: 20150402
  8. SOMAC [Concomitant]
     Active Substance: PANTOPRAZOLE SODIUM
     Dosage: WHEN NEEDED
     Route: 065
     Dates: start: 20130527
  9. FASLODEX [Concomitant]
     Active Substance: FULVESTRANT
     Dosage: ACCORDING TO SEPARATE INSTRUCTIONS
     Route: 065
     Dates: start: 20131022
  10. PRIMPERAN [Concomitant]
     Active Substance: METOCLOPRAMIDE HYDROCHLORIDE
     Dosage: 1-2 TABLETS 3 TIMES A DAY WHEN NEEDED
     Route: 065
     Dates: start: 20130516
  11. GRANISETRON STADA [Concomitant]
     Dosage: WHEN NEEDED
     Route: 065
     Dates: start: 20150402
  12. CAPECITABINE ACCORD [Concomitant]
     Active Substance: CAPECITABINE
     Route: 065
     Dates: start: 20140815
  13. PANACOD [Concomitant]
     Active Substance: ACETAMINOPHEN\CODEINE PHOSPHATE
     Dosage: 1-2 TABLETS THREE TIMES A DAY, WHEN NEEDED
     Route: 065

REACTIONS (4)
  - Osteonecrosis of jaw [Recovering/Resolving]
  - Bacterial infection [Recovering/Resolving]
  - Oral infection [Recovering/Resolving]
  - Tooth extraction [Recovered/Resolved]

NARRATIVE: CASE EVENT DATE: 2015
